FAERS Safety Report 11419782 (Version 1)
Quarter: 2015Q3

REPORT INFORMATION
  Report Type: Spontaneous
  Country: US (occurrence: None)
  Receive Date: 20150825
  Receipt Date: 20150825
  Transmission Date: 20151125
  Serious: Yes (Life-Threatening)
  Sender: FDA-Public Use
  Company Number: None

PATIENT
  Age: 52 Year
  Sex: Female
  Weight: 86.18 kg

DRUGS (1)
  1. WELLBUTRIN SR [Suspect]
     Active Substance: BUPROPION HYDROCHLORIDE
     Indication: DEPRESSION
     Route: 048
     Dates: end: 20150824

REACTIONS (8)
  - Road traffic accident [None]
  - Contusion [None]
  - Foot fracture [None]
  - Abnormal behaviour [None]
  - Memory impairment [None]
  - Loss of consciousness [None]
  - Fall [None]
  - Impaired driving ability [None]

NARRATIVE: CASE EVENT DATE: 20150803
